FAERS Safety Report 4804488-3 (Version None)
Quarter: 2005Q4

REPORT INFORMATION
  Report Type: 
  Country: None (occurrence: None)
  Receive Date: 20051018
  Receipt Date: 20051018
  Transmission Date: 20060501
  Serious: Yes (Life-Threatening, Hospitalization)
  Sender: FDA-Public Use
  Company Number: None

PATIENT
  Sex: Male

DRUGS (1)
  1. KETAMINE 100 MG/ML MONARCH [Suspect]
     Indication: LIGHT ANAESTHESIA
     Dosage: 4 MG/KG 1 TIME IM [1 DOSE]
     Route: 030
     Dates: start: 20051014, end: 20051014

REACTIONS (2)
  - LARYNGOSPASM [None]
  - POST PROCEDURAL VOMITING [None]
